FAERS Safety Report 9666319 (Version 2)
Quarter: 2013Q4

REPORT INFORMATION
  Report Type: Spontaneous
  Country: FR (occurrence: FR)
  Receive Date: 20131104
  Receipt Date: 20131104
  Transmission Date: 20140711
  Serious: Yes (Other)
  Sender: FDA-Public Use
  Company Number: FR-NOVOPROD-390829

PATIENT
  Age: 63 Year
  Sex: Female
  Weight: 69 kg

DRUGS (2)
  1. NOVOMIX [Suspect]
     Indication: TYPE 2 DIABETES MELLITUS
     Dosage: 20 IU IN MORNING AND 24 IU IN EVENING
     Route: 065
     Dates: start: 20130829
  2. NOVOMIX [Suspect]
     Route: 065

REACTIONS (7)
  - Abdominal pain upper [Recovering/Resolving]
  - Nausea [Recovered/Resolved]
  - Headache [Recovered/Resolved]
  - Dysstasia [Recovered/Resolved]
  - Balance disorder [Unknown]
  - Drug ineffective [Unknown]
  - Liquid product physical issue [Unknown]
